FAERS Safety Report 6060173-4 (Version None)
Quarter: 2009Q1

REPORT INFORMATION
  Report Type: 
  Country: None (occurrence: None)
  Receive Date: 20090128
  Receipt Date: 20090116
  Transmission Date: 20090719
  Serious: Yes (Other)
  Sender: FDA-Public Use
  Company Number: B0543080A

PATIENT
  Age: 33 Year
  Sex: Male

DRUGS (3)
  1. BUPROPION HYDROCHLORIDE [Suspect]
     Indication: EX-TOBACCO USER
     Dosage: 150 MG / TWICE PER DAY/ORAL
     Route: 048
  2. NICOTINE [Concomitant]
  3. NAPROXEN [Concomitant]

REACTIONS (5)
  - ANGIOEDEMA [None]
  - DIARRHOEA [None]
  - DRUG HYPERSENSITIVITY [None]
  - SKIN IRRITATION [None]
  - WITHDRAWAL SYNDROME [None]
